FAERS Safety Report 4438856-9 (Version None)
Quarter: 2004Q3

REPORT INFORMATION
  Report Type: 
  Country: None (occurrence: None)
  Receive Date: 20040901
  Receipt Date: 20040826
  Transmission Date: 20050211
  Serious: Yes (Hospitalization)
  Sender: FDA-Public Use
  Company Number: 200413212FR

PATIENT
  Age: 93 Year
  Sex: Female
  Weight: 45 kg

DRUGS (7)
  1. LASILIX FAIBLE [Suspect]
     Route: 048
  2. KENZEN [Suspect]
     Route: 048
     Dates: end: 20040710
  3. DIGOXIN [Suspect]
     Indication: ATRIAL FIBRILLATION
     Route: 048
     Dates: end: 20040710
  4. DIGOXIN [Suspect]
     Indication: ATRIAL FLUTTER
     Route: 048
     Dates: end: 20040710
  5. LEXOMIL ROCHE [Concomitant]
     Route: 048
     Dates: end: 20030710
  6. PREVISCAN 20 MG [Concomitant]
     Route: 048
     Dates: end: 20030710
  7. ZYLORIC [Concomitant]
     Route: 048
     Dates: end: 20030710

REACTIONS (14)
  - ANOREXIA [None]
  - ASTHENIA [None]
  - ATRIAL FIBRILLATION [None]
  - BLOOD SODIUM DECREASED [None]
  - BRADYCARDIA [None]
  - CARDIAC MURMUR [None]
  - CIRCADIAN RHYTHM SLEEP DISORDER [None]
  - CONDITION AGGRAVATED [None]
  - DISORIENTATION [None]
  - DRUG INTERACTION [None]
  - INTERNATIONAL NORMALISED RATIO INCREASED [None]
  - OVERDOSE [None]
  - RENAL FAILURE [None]
  - SKIN DISORDER [None]
